FAERS Safety Report 18340771 (Version 3)
Quarter: 2020Q4

REPORT INFORMATION
  Report Type: Spontaneous
  Country: US (occurrence: US)
  Receive Date: 20201003
  Receipt Date: 20201009
  Transmission Date: 20210113
  Serious: No
  Sender: FDA-Public Use
  Company Number: US-TORRENT-00010441

PATIENT
  Age: 93 Year
  Sex: Female

DRUGS (5)
  1. OMEPRAZOLE. [Concomitant]
     Active Substance: OMEPRAZOLE
     Indication: GASTROOESOPHAGEAL REFLUX DISEASE
  2. FELODIPINE EXTENDED-RELEASE TABLETS USP [Suspect]
     Active Substance: FELODIPINE
     Indication: HYPERTENSION
     Dosage: DISPENSED WITH 90 TABLETS TAKEN 4 TABLETS
     Dates: start: 20200907
  3. LEVOTHYROXINE. [Concomitant]
     Active Substance: LEVOTHYROXINE
     Indication: PRODUCT USED FOR UNKNOWN INDICATION
  4. FELODIPINE. [Concomitant]
     Active Substance: FELODIPINE
     Indication: HYPERTENSION
     Dosage: FINISHED HER PREVIOUS LEFT TABLETS
  5. RALOFEN [Concomitant]
     Indication: PRODUCT USED FOR UNKNOWN INDICATION

REACTIONS (3)
  - Product taste abnormal [Unknown]
  - Feeling abnormal [Unknown]
  - Product use complaint [Unknown]
